FAERS Safety Report 8240288-2 (Version None)
Quarter: 2012Q1

REPORT INFORMATION
  Report Type: 
  Country: None (occurrence: None)
  Receive Date: 20120328
  Receipt Date: 20120328
  Transmission Date: 20120608
  Serious: No
  Sender: FDA-Public Use
  Company Number: None

PATIENT
  Age: 30 Year
  Sex: Male
  Weight: 83.914 kg

DRUGS (1)
  1. LARIAM [Suspect]
     Indication: MALARIA PROPHYLAXIS
     Dosage: 250 MG
     Route: 048
     Dates: start: 19930915, end: 19941015

REACTIONS (7)
  - VERTIGO [None]
  - TINNITUS [None]
  - SUICIDAL IDEATION [None]
  - ABNORMAL DREAMS [None]
  - AMNESIA [None]
  - TREMOR [None]
  - SLEEP DISORDER [None]
